FAERS Safety Report 18251365 (Version 4)
Quarter: 2021Q2

REPORT INFORMATION
  Report Type: Spontaneous
  Country: JP (occurrence: JP)
  Receive Date: 20200910
  Receipt Date: 20210620
  Transmission Date: 20210717
  Serious: Yes (Death, Disabling, Other)
  Sender: FDA-Public Use
  Company Number: NVSJ2020JP008525

PATIENT
  Age: 87 Year
  Sex: Male

DRUGS (1)
  1. BEOVU [Suspect]
     Active Substance: BROLUCIZUMAB-DBLL
     Indication: AGE-RELATED MACULAR DEGENERATION
     Dosage: 6 MG
     Route: 031
     Dates: start: 20200729, end: 20200729

REACTIONS (6)
  - Retinal artery occlusion [Not Recovered/Not Resolved]
  - Myocardial infarction [Fatal]
  - Visual acuity reduced [Recovering/Resolving]
  - Anterior chamber inflammation [Recovering/Resolving]
  - Retinal vasculitis [Not Recovered/Not Resolved]
  - Vitreous opacities [Recovering/Resolving]

NARRATIVE: CASE EVENT DATE: 20200902
